FAERS Safety Report 5593549-X (Version None)
Quarter: 2008Q1

REPORT INFORMATION
  Report Type: 
  Country: None (occurrence: None)
  Receive Date: 20080116
  Receipt Date: 20080114
  Transmission Date: 20080703
  Serious: Yes (Hospitalization)
  Sender: FDA-Public Use
  Company Number: CN-BRISTOL-MYERS SQUIBB COMPANY-14039515

PATIENT

DRUGS (7)
  1. METFORMIN HCL [Suspect]
     Dosage: FIRST 4 DAYS-250MG.
  2. CLOZAPINE [Suspect]
  3. OLANZAPINE [Suspect]
  4. RISPERIDONE [Suspect]
  5. SULPIRIDE [Suspect]
  6. TRIHEXYPHENIDYL HCL [Suspect]
     Indication: EXTRAPYRAMIDAL DISORDER
  7. LORAZEPAM [Suspect]
     Indication: INSOMNIA

REACTIONS (8)
  - AGITATION [None]
  - DRY MOUTH [None]
  - EXTRAPYRAMIDAL DISORDER [None]
  - HEADACHE [None]
  - INSOMNIA [None]
  - NAUSEA [None]
  - PSYCHOTIC DISORDER [None]
  - SOMNOLENCE [None]
